FAERS Safety Report 23534915 (Version 2)
Quarter: 2024Q1

REPORT INFORMATION
  Report Type: Spontaneous
  Country: DE (occurrence: DE)
  Receive Date: 20240217
  Receipt Date: 20240315
  Transmission Date: 20240409
  Serious: Yes (Other)
  Sender: FDA-Public Use
  Company Number: DE-AMGEN-DEUSP2024029552

PATIENT

DRUGS (9)
  1. ADALIMUMAB [Suspect]
     Active Substance: ADALIMUMAB\ISOPROPYL ALCOHOL
     Indication: Psoriasis
     Dosage: UNK
     Route: 065
  2. APREMILAST [Suspect]
     Active Substance: APREMILAST
     Indication: Psoriasis
     Dosage: UNK
     Route: 065
  3. ETANERCEPT [Suspect]
     Active Substance: ETANERCEPT
     Indication: Psoriasis
     Dosage: UNK
     Route: 065
  4. INFLIXIMAB [Suspect]
     Active Substance: INFLIXIMAB
     Indication: Psoriasis
     Dosage: UNK
     Route: 065
  5. USTEKINUMAB [Concomitant]
     Active Substance: USTEKINUMAB
     Indication: Psoriasis
     Route: 065
  6. ACITRETIN [Concomitant]
     Active Substance: ACITRETIN
     Indication: Psoriasis
     Route: 065
  7. METHOTREXATE [Concomitant]
     Active Substance: METHOTREXATE
     Indication: Psoriasis
  8. CYCLOSPORINE [Concomitant]
     Active Substance: CYCLOSPORINE
     Indication: Psoriasis
  9. DISODIUM FUMARATE [Concomitant]
     Active Substance: DISODIUM FUMARATE
     Indication: Psoriasis

REACTIONS (26)
  - Sarcoma [Unknown]
  - Cervix carcinoma [Unknown]
  - Thyroid cancer [Unknown]
  - Uterine cancer [Unknown]
  - Ovarian cancer [Unknown]
  - Colorectal cancer [Unknown]
  - Prostate cancer [Unknown]
  - Gastric cancer [Unknown]
  - Hepatobiliary cancer [Unknown]
  - Oesophageal carcinoma [Unknown]
  - Bladder cancer [Unknown]
  - Renal cancer [Unknown]
  - Pancreatic carcinoma [Unknown]
  - Lip and/or oral cavity cancer [Unknown]
  - Laryngeal cancer [Unknown]
  - Pharyngeal cancer [Unknown]
  - Brain neoplasm malignant [Unknown]
  - Lymphocytic leukaemia [Unknown]
  - Myeloid leukaemia [Unknown]
  - Lung neoplasm malignant [Unknown]
  - Breast cancer [Unknown]
  - Hodgkin^s disease [Unknown]
  - Non-Hodgkin^s lymphoma [Unknown]
  - Malignant melanoma [Unknown]
  - Squamous cell carcinoma of skin [Unknown]
  - Basal cell carcinoma [Unknown]
